FAERS Safety Report 9835465 (Version 2)
Quarter: 2014Q1

REPORT INFORMATION
  Report Type: Spontaneous
  Country: US (occurrence: US)
  Receive Date: 20140122
  Receipt Date: 20140122
  Transmission Date: 20141002
  Serious: Yes (Hospitalization)
  Sender: FDA-Public Use
  Company Number: US-BRISTOL-MYERS SQUIBB COMPANY-19638733

PATIENT
  Sex: Male

DRUGS (1)
  1. ELIQUIS [Suspect]
     Dates: start: 20131001

REACTIONS (2)
  - Adverse event [Unknown]
  - Circumstance or information capable of leading to medication error [Unknown]
